FAERS Safety Report 17002028 (Version 1)
Quarter: 2019Q4

REPORT INFORMATION
  Report Type: Spontaneous
  Country: DE (occurrence: DE)
  Receive Date: 20191106
  Receipt Date: 20191106
  Transmission Date: 20200122
  Serious: Yes (Hospitalization, Other)
  Sender: FDA-Public Use
  Company Number: DE-AMGEN-DEUSP2019183823

PATIENT
  Sex: Female

DRUGS (3)
  1. METAMIZOLE [Suspect]
     Active Substance: METAMIZOLE
     Indication: INFECTION
  2. METAMIZOLE [Suspect]
     Active Substance: METAMIZOLE
     Indication: SURGERY
     Dosage: UNK
     Route: 065
  3. AIMOVIG [Suspect]
     Active Substance: ERENUMAB-AOOE
     Indication: MIGRAINE
     Dosage: UNK
     Route: 058
     Dates: start: 2019, end: 201910

REACTIONS (3)
  - Agranulocytosis [Recovered/Resolved]
  - Agranulocytosis [Recovered/Resolved]
  - Tooth infection [Not Recovered/Not Resolved]

NARRATIVE: CASE EVENT DATE: 201910
